FAERS Safety Report 7905109-3 (Version None)
Quarter: 2011Q4

REPORT INFORMATION
  Report Type: 
  Country: None (occurrence: None)
  Receive Date: 20111109
  Receipt Date: 20111023
  Transmission Date: 20120403
  Serious: Yes (Hospitalization, Other)
  Sender: FDA-Public Use
  Company Number: PHHY2011AU94515

PATIENT
  Age: 32 Year
  Sex: Male

DRUGS (4)
  1. BASILIXIMAB [Suspect]
     Indication: IMMUNOSUPPRESSION
  2. MYCOPHENOLATE MOFETIL [Suspect]
     Indication: IMMUNOSUPPRESSION
  3. METHYLPREDNISOLONE [Suspect]
     Indication: IMMUNOSUPPRESSION
  4. CYCLOSPORINE [Suspect]
     Indication: IMMUNOSUPPRESSION

REACTIONS (28)
  - ACUTE RESPIRATORY DISTRESS SYNDROME [None]
  - KIDNEY FIBROSIS [None]
  - CONVULSION [None]
  - UROSEPSIS [None]
  - HAEMATURIA [None]
  - RENAL TUBULAR NECROSIS [None]
  - HYDRONEPHROSIS [None]
  - CHRONIC ALLOGRAFT NEPHROPATHY [None]
  - LUNG INFILTRATION [None]
  - ABDOMINAL DISCOMFORT [None]
  - SWELLING [None]
  - NAUSEA [None]
  - TACHYCARDIA [None]
  - ASPERGILLOSIS [None]
  - AZOTAEMIA [None]
  - RENAL INJURY [None]
  - RENAL TUBULAR ATROPHY [None]
  - KIDNEY ENLARGEMENT [None]
  - ABDOMINAL TENDERNESS [None]
  - RENAL HAEMORRHAGE [None]
  - KIDNEY TRANSPLANT REJECTION [None]
  - COAGULOPATHY [None]
  - HAEMODYNAMIC INSTABILITY [None]
  - FATIGUE [None]
  - PANCYTOPENIA [None]
  - BLOOD CREATININE INCREASED [None]
  - COMPLICATIONS OF TRANSPLANTED KIDNEY [None]
  - PYREXIA [None]
